FAERS Safety Report 8835958 (Version 1)
Quarter: 2012Q4

REPORT INFORMATION
  Report Type: 
  Country: BR (occurrence: BR)
  Receive Date: 20121011
  Receipt Date: 20121011
  Transmission Date: 20130627
  Serious: Yes (Hospitalization)
  Sender: FDA-Public Use
  Company Number: BR-NOVOPROD-361469

PATIENT
  Age: 4 Year
  Sex: Female

DRUGS (1)
  1. NORDITROPIN NORDIFLEX [Suspect]
     Indication: GROWTH RETARDATION
     Dosage: 0.6 mg, qd
     Route: 058

REACTIONS (2)
  - Pneumonia [Unknown]
  - Infectious mononucleosis [Unknown]
